FAERS Safety Report 6190142-5 (Version None)
Quarter: 2009Q2

REPORT INFORMATION
  Report Type: 
  Country: None (occurrence: None)
  Receive Date: 20090513
  Receipt Date: 20090513
  Transmission Date: 20091009
  Serious: Yes (Life-Threatening)
  Sender: FDA-Public Use
  Company Number: None

PATIENT
  Age: 68 Year
  Sex: Male
  Weight: 104.3273 kg

DRUGS (1)
  1. METOPROLOL SUCCINATE EXTENDED RELEASE [Suspect]
     Indication: ARRHYTHMIA
     Dosage: 50 MG 2 TIMES DAILY PO
     Route: 048
     Dates: start: 20080303, end: 20090505

REACTIONS (4)
  - BLOOD PRESSURE FLUCTUATION [None]
  - EXTRASYSTOLES [None]
  - HEART RATE INCREASED [None]
  - PRODUCT SUBSTITUTION ISSUE [None]
